FAERS Safety Report 16325251 (Version 1)
Quarter: 2019Q2

REPORT INFORMATION
  Report Type: Spontaneous
  Country: US (occurrence: US)
  Receive Date: 20190517
  Receipt Date: 20190517
  Transmission Date: 20190711
  Serious: Yes (Hospitalization)
  Sender: FDA-Public Use
  Company Number: US-CELGENEUS-USA-20190505761

PATIENT
  Age: 61 Year
  Sex: Male
  Weight: 92.16 kg

DRUGS (2)
  1. NIVOLUMAB [Suspect]
     Active Substance: NIVOLUMAB
     Indication: NEOPLASM MALIGNANT
     Dosage: 360 MILLIGRAM
     Route: 041
     Dates: start: 20190215, end: 20190419
  2. ABRAXANE [Suspect]
     Active Substance: PACLITAXEL
     Indication: NEOPLASM MALIGNANT
     Dosage: 100 MILLIGRAM/SQ. METER
     Route: 041
     Dates: start: 20190215, end: 20190419

REACTIONS (3)
  - Mucosal inflammation [Unknown]
  - Cough [Unknown]
  - Pyrexia [Unknown]

NARRATIVE: CASE EVENT DATE: 20190510
